FAERS Safety Report 8023398-4 (Version None)
Quarter: 2012Q1

REPORT INFORMATION
  Report Type: 
  Country: None (occurrence: None)
  Receive Date: 20120104
  Receipt Date: 20111004
  Transmission Date: 20120608
  Serious: Yes (Death)
  Sender: FDA-Public Use
  Company Number: PHHY2011IL69086

PATIENT

DRUGS (1)
  1. EXJADE [Suspect]
     Indication: THALASSAEMIA
     Route: 048

REACTIONS (1)
  - DEATH [None]
